FAERS Safety Report 23727099 (Version 1)
Quarter: 2024Q2

REPORT INFORMATION
  Report Type: Spontaneous
  Country: US (occurrence: US)
  Receive Date: 20240410
  Receipt Date: 20240410
  Transmission Date: 20240715
  Serious: Yes (Hospitalization)
  Sender: FDA-Public Use
  Company Number: US-MYLANLABS-2024M1031966

PATIENT
  Age: 24 Year
  Sex: Female

DRUGS (2)
  1. NITROGLYCERIN [Suspect]
     Active Substance: NITROGLYCERIN
     Indication: Coronary artery disease
     Dosage: UNK
     Route: 065
  2. NITROGLYCERIN [Suspect]
     Active Substance: NITROGLYCERIN
     Indication: Ischaemia

REACTIONS (1)
  - Drug ineffective [Unknown]
